FAERS Safety Report 7263332-8 (Version None)
Quarter: 2011Q1

REPORT INFORMATION
  Report Type: 
  Country: None (occurrence: None)
  Receive Date: 20110130
  Receipt Date: 20101025
  Transmission Date: 20110831
  Serious: No
  Sender: FDA-Public Use
  Company Number: US-ABBOTT-10P-163-0675880-00

PATIENT
  Sex: Female
  Weight: 64.922 kg

DRUGS (7)
  1. PREDNISONE [Concomitant]
     Indication: SARCOIDOSIS
     Route: 048
  2. HUMIRA [Suspect]
     Indication: SARCOIDOSIS
     Dosage: 3 INJECTIONS
     Route: 058
     Dates: start: 20100921
  3. MIDODRINE HYDROCHLORIDE [Concomitant]
     Indication: HYPOTENSION
     Route: 048
  4. CITALOPRAM [Concomitant]
     Indication: ANXIETY
     Route: 048
  5. SIMVASTATIN [Concomitant]
     Indication: BLOOD CHOLESTEROL INCREASED
     Route: 048
  6. PANTOPRAZOLE [Concomitant]
     Indication: GASTROOESOPHAGEAL REFLUX DISEASE
     Route: 048
  7. RANITIDINE [Concomitant]
     Indication: PRODUCT USED FOR UNKNOWN INDICATION
     Route: 048

REACTIONS (6)
  - DECREASED APPETITE [None]
  - FATIGUE [None]
  - WEIGHT DECREASED [None]
  - NAUSEA [None]
  - MUSCULAR WEAKNESS [None]
  - COUGH [None]
